FAERS Safety Report 7171308-4 (Version None)
Quarter: 2010Q4

REPORT INFORMATION
  Report Type: 
  Country: None (occurrence: None)
  Receive Date: 20101123
  Receipt Date: 20100722
  Transmission Date: 20110411
  Serious: No
  Sender: FDA-Public Use
  Company Number: 016146

PATIENT
  Sex: Female

DRUGS (1)
  1. CIMZIA [Suspect]
     Dosage: (UNSPECIFIED SUBCUTANEOUS)
     Route: 058
     Dates: start: 20100409

REACTIONS (4)
  - ABSCESS [None]
  - ABSCESS RUPTURE [None]
  - FATIGUE [None]
  - FREQUENT BOWEL MOVEMENTS [None]
